FAERS Safety Report 5927381-1 (Version None)
Quarter: 2008Q4

REPORT INFORMATION
  Report Type: 
  Country: None (occurrence: None)
  Receive Date: 20081021
  Receipt Date: 20081021
  Transmission Date: 20090506
  Serious: No
  Sender: FDA-Public Use
  Company Number: None

PATIENT
  Sex: Female
  Weight: 71.2147 kg

DRUGS (2)
  1. BENICAR [Suspect]
     Indication: HYPERTENSION
     Dosage: 1 DAILY ORAL
     Route: 048
  2. BENICAR HCT [Suspect]
     Indication: HYPERTENSION
     Dosage: 1 DAILY ORAL
     Route: 048

REACTIONS (4)
  - ABDOMINAL PAIN UPPER [None]
  - DIZZINESS [None]
  - NO THERAPEUTIC RESPONSE [None]
  - RECTAL HAEMORRHAGE [None]
